FAERS Safety Report 4960864-X (Version None)
Quarter: 2006Q2

REPORT INFORMATION
  Report Type: 
  Country: None (occurrence: None)
  Receive Date: 20060403
  Receipt Date: 20050812
  Transmission Date: 20061013
  Serious: Yes (Hospitalization, Disabling)
  Sender: FDA-Public Use
  Company Number: US-ROCHE-414262

PATIENT
  Age: 17 Year
  Sex: Female
  Weight: 45.8 kg

DRUGS (4)
  1. ACCUTANE [Suspect]
     Indication: ACNE
     Route: 048
     Dates: start: 19980713, end: 19990126
  2. ACCUTANE [Suspect]
     Route: 048
     Dates: start: 20000519, end: 20000622
  3. BACTRIM DS [Concomitant]
     Indication: SINUSITIS
     Route: 048
     Dates: start: 19981124
  4. DRYSOL [Concomitant]
     Indication: HYPERHIDROSIS
     Dates: start: 19980713

REACTIONS (59)
  - ADHESION [None]
  - ANAEMIA [None]
  - ANKYLOSING SPONDYLITIS [None]
  - ANOREXIA [None]
  - ANXIETY [None]
  - ARTHRALGIA [None]
  - ARTHROPOD BITE [None]
  - ASTHENIA [None]
  - AXILLARY PAIN [None]
  - BACK PAIN [None]
  - BLOOD TRIGLYCERIDES INCREASED [None]
  - CERVICITIS [None]
  - CHEILITIS [None]
  - CHEST DISCOMFORT [None]
  - COLITIS [None]
  - COLITIS ULCERATIVE [None]
  - DEHYDRATION [None]
  - DEPRESSION [None]
  - DERMATITIS [None]
  - DIZZINESS [None]
  - DRUG INEFFECTIVE [None]
  - DRY SKIN [None]
  - ENTHESOPATHY [None]
  - ERYTHEMA [None]
  - EYE IRRITATION [None]
  - FATIGUE [None]
  - FLAT FEET [None]
  - FUNGAL SKIN INFECTION [None]
  - GASTRITIS [None]
  - GASTROINTESTINAL DISORDER [None]
  - GASTROOESOPHAGEAL REFLUX DISEASE [None]
  - HAEMORRHOIDS [None]
  - HEPATIC ENZYME INCREASED [None]
  - HERPES VIRUS INFECTION [None]
  - HIDRADENITIS [None]
  - HYPERHIDROSIS [None]
  - ILEUS [None]
  - INSOMNIA [None]
  - INTESTINAL HAEMORRHAGE [None]
  - MULTI-ORGAN DISORDER [None]
  - NAUSEA [None]
  - OEDEMA PERIPHERAL [None]
  - OSTEOARTHRITIS [None]
  - PERIARTHRITIS [None]
  - PHARYNGITIS [None]
  - PITYRIASIS [None]
  - RADICULOPATHY [None]
  - RASH [None]
  - RECTAL HAEMORRHAGE [None]
  - SMALL INTESTINAL OBSTRUCTION [None]
  - SPINAL OSTEOARTHRITIS [None]
  - STRESS [None]
  - SWELLING FACE [None]
  - SYNOVITIS [None]
  - TENDON INJURY [None]
  - ULCER [None]
  - UPPER RESPIRATORY TRACT INFECTION [None]
  - VERTIGO POSITIONAL [None]
  - WEIGHT DECREASED [None]
